FAERS Safety Report 6715798-7 (Version None)
Quarter: 2010Q2

REPORT INFORMATION
  Report Type: 
  Country: None (occurrence: None)
  Receive Date: 20100507
  Receipt Date: 20100503
  Transmission Date: 20101027
  Serious: Yes (Hospitalization)
  Sender: FDA-Public Use
  Company Number: US-ELI_LILLY_AND_COMPANY-US201005000622

PATIENT
  Sex: Female

DRUGS (3)
  1. HUMALOG [Suspect]
  2. HUMALOG [Suspect]
     Indication: DIABETES MELLITUS
     Route: 058
  3. LANTUS [Concomitant]
     Dosage: UNK, EACH EVENING

REACTIONS (4)
  - BLOOD GLUCOSE INCREASED [None]
  - INFUSION SITE INFECTION [None]
  - PURULENT DISCHARGE [None]
  - VISUAL IMPAIRMENT [None]
